FAERS Safety Report 24001783 (Version 3)
Quarter: 2024Q3

REPORT INFORMATION
  Report Type: Spontaneous
  Country: JP (occurrence: JP)
  Receive Date: 20240622
  Receipt Date: 20240710
  Transmission Date: 20241017
  Serious: Yes (Other)
  Sender: UCB
  Company Number: JP-UCBJ-CD202405465UCBPHAPROD

PATIENT
  Age: 41 Year
  Sex: Male

DRUGS (3)
  1. LEVETIRACETAM [Suspect]
     Active Substance: LEVETIRACETAM
     Indication: Epilepsy
     Dosage: 100 MILLIGRAM
     Route: 048
  2. LEVETIRACETAM [Suspect]
     Active Substance: LEVETIRACETAM
     Dosage: UNK, ADMINISTRATION OF ADDITIONAL 100 MG ON SEIZURE ONSET
     Route: 048
  3. LEVETIRACETAM [Suspect]
     Active Substance: LEVETIRACETAM
     Indication: Epilepsy
     Dosage: 25 MILLIGRAM/KILOGRAM, 2X/DAY (BID)
     Route: 048

REACTIONS (3)
  - Myoclonic epilepsy [Recovered/Resolved]
  - Somnolence [Unknown]
  - Off label use [Unknown]
